FAERS Safety Report 6537284-X (Version None)
Quarter: 2010Q1

REPORT INFORMATION
  Report Type: 
  Country: None (occurrence: None)
  Receive Date: 20100114
  Receipt Date: 20100111
  Transmission Date: 20100710
  Serious: Yes (Hospitalization)
  Sender: FDA-Public Use
  Company Number: US-BAYER-200938279NA

PATIENT
  Age: 46 Year
  Sex: Female
  Weight: 64 kg

DRUGS (2)
  1. YAZ [Suspect]
     Indication: CONTRACEPTION
     Dates: start: 20080401, end: 20091021
  2. LEVAQUIN [Concomitant]
     Indication: PLEURITIC PAIN
     Dosage: TOTAL DAILY DOSE: 500 MG
     Route: 048
     Dates: start: 20091019, end: 20091021

REACTIONS (3)
  - DYSPNOEA [None]
  - PLEURITIC PAIN [None]
  - PULMONARY EMBOLISM [None]
